FAERS Safety Report 5613983-9 (Version None)
Quarter: 2008Q1

REPORT INFORMATION
  Report Type: 
  Country: None (occurrence: None)
  Receive Date: 20080205
  Receipt Date: 20080125
  Transmission Date: 20080703
  Serious: Yes (Hospitalization)
  Sender: FDA-Public Use
  Company Number: US-KINGPHARMUSA00001-K200800143

PATIENT

DRUGS (19)
  1. AVINZA [Suspect]
     Indication: PAIN
     Dosage: 120 MG, BID
  2. TOMANZAPAM [Concomitant]
  3. PLAVIX [Concomitant]
  4. AVENSIL [Concomitant]
  5. LORAZEPAM [Concomitant]
  6. METOPROLOL TARTRATE [Concomitant]
  7. AMBIEN [Concomitant]
  8. LASIX [Concomitant]
  9. PREVACID [Concomitant]
  10. PROVIGIL [Concomitant]
  11. AVAPRO [Concomitant]
  12. SOMA [Concomitant]
  13. CITROPAM [Concomitant]
     Indication: DEPRESSION
  14. FOLIC ACID [Concomitant]
  15. LIPITOR [Concomitant]
  16. ESTRADIOL [Concomitant]
  17. MAGNESIUM [Concomitant]
  18. HYDROXCHLOROQUINE [Concomitant]
  19. REMICADE [Concomitant]
     Indication: RHEUMATOID ARTHRITIS

REACTIONS (10)
  - BRAIN CONTUSION [None]
  - CONVULSION [None]
  - DRUG SCREEN POSITIVE [None]
  - FIBROMYALGIA [None]
  - FOOT FRACTURE [None]
  - IMPAIRED DRIVING ABILITY [None]
  - LOSS OF CONSCIOUSNESS [None]
  - PSYCHIATRIC SYMPTOM [None]
  - RIB FRACTURE [None]
  - ROAD TRAFFIC ACCIDENT [None]
